FAERS Safety Report 6463492-2 (Version None)
Quarter: 2009Q4

REPORT INFORMATION
  Report Type: 
  Country: None (occurrence: None)
  Receive Date: 20091201
  Receipt Date: 20091119
  Transmission Date: 20100525
  Serious: Yes (Hospitalization)
  Sender: FDA-Public Use
  Company Number: US-BIOGENIDEC-2009BI036638

PATIENT
  Age: 39 Year
  Sex: Female

DRUGS (9)
  1. TYSABRI [Suspect]
     Indication: MULTIPLE SCLEROSIS
     Route: 042
     Dates: start: 20090821
  2. PROVIGIL [Concomitant]
  3. BACLOFEN [Concomitant]
  4. LYRICA [Concomitant]
  5. MS CONTIN [Concomitant]
  6. PROZAC [Concomitant]
  7. NORCO [Concomitant]
     Indication: PAIN
  8. SENNA [Concomitant]
  9. AMITRIPTYLINE [Concomitant]

REACTIONS (3)
  - ERYTHEMA INFECTIOSUM [None]
  - HEPATIC ENZYME INCREASED [None]
  - VIRAL INFECTION [None]
